FAERS Safety Report 6884638-8 (Version None)
Quarter: 2010Q3

REPORT INFORMATION
  Report Type: 
  Country: None (occurrence: None)
  Receive Date: 20100729
  Receipt Date: 20070801
  Transmission Date: 20110219
  Serious: No
  Sender: FDA-Public Use
  Company Number: US-PFIZER INC-2007049719

PATIENT
  Sex: Male
  Weight: 90.72 kg

DRUGS (3)
  1. CELECOXIB [Suspect]
     Indication: NECK PAIN
     Route: 048
     Dates: start: 20070501
  2. LORTAB [Suspect]
     Dates: start: 20070501
  3. IBUPROFEN TABLETS [Concomitant]
     Route: 048

REACTIONS (5)
  - DRUG INEFFECTIVE [None]
  - HYPERSENSITIVITY [None]
  - PRURITUS [None]
  - RASH [None]
  - URTICARIA [None]
